FAERS Safety Report 16768471 (Version 1)
Quarter: 2019Q3

REPORT INFORMATION
  Report Type: Spontaneous
  Country: US (occurrence: US)
  Receive Date: 20190903
  Receipt Date: 20190903
  Transmission Date: 20191005
  Serious: Yes (Hospitalization, Other)
  Sender: FDA-Public Use
  Company Number: US-JNJFOC-20190900415

PATIENT
  Sex: Female

DRUGS (2)
  1. IMBRUVICA [Suspect]
     Active Substance: IBRUTINIB
     Dosage: UNK
     Route: 065
     Dates: start: 20190816, end: 20190827
  2. IMBRUVICA [Suspect]
     Active Substance: IBRUTINIB
     Indication: CHRONIC LYMPHOCYTIC LEUKAEMIA
     Dosage: 420 MG, QD
     Route: 065
     Dates: start: 20181005, end: 201908

REACTIONS (2)
  - Aortic dissection [Unknown]
  - Aortic intramural haematoma [Unknown]

NARRATIVE: CASE EVENT DATE: 20190810
